FAERS Safety Report 8446033 (Version 2)
Quarter: 2013Q2

REPORT INFORMATION
  Report Type: Spontaneous
  Country: US (occurrence: US)
  Receive Date: 20120307
  Receipt Date: 20130401
  Transmission Date: 20140414
  Serious: No
  Sender: FDA-Public Use
  Company Number: US-ASTRAZENECA-2012SE06913

PATIENT
  Age: 64 Year
  Sex: Female

DRUGS (1)
  1. ZOMIG [Suspect]
     Indication: MIGRAINE
     Route: 048

REACTIONS (5)
  - Malaise [Unknown]
  - Sleep disorder due to general medical condition, insomnia type [Unknown]
  - Memory impairment [Unknown]
  - Headache [Unknown]
  - Intentional drug misuse [Unknown]
